FAERS Safety Report 11996563 (Version 1)
Quarter: 2016Q1

REPORT INFORMATION
  Report Type: Spontaneous
  Country: US (occurrence: US)
  Receive Date: 20160203
  Receipt Date: 20160203
  Transmission Date: 20160526
  Serious: Yes (Other)
  Sender: FDA-Public Use
  Company Number: US-ROXANE LABORATORIES, INC.-2016-RO-00193RO

PATIENT
  Age: 48 Year
  Sex: Female

DRUGS (1)
  1. DOLOPHINE [Suspect]
     Active Substance: METHADONE HYDROCHLORIDE
     Indication: PAIN
     Dosage: 10 MG
     Route: 048
     Dates: start: 201601, end: 201601

REACTIONS (1)
  - Hypersensitivity [Not Recovered/Not Resolved]
